FAERS Safety Report 5276070-8 (Version None)
Quarter: 2007Q1

REPORT INFORMATION
  Report Type: 
  Country: None (occurrence: None)
  Receive Date: 20070326
  Receipt Date: 20070314
  Transmission Date: 20070707
  Serious: Yes (Other)
  Sender: FDA-Public Use
  Company Number: PHBS2007CA04762

PATIENT
  Age: 12 Year
  Sex: Male

DRUGS (4)
  1. CYCLOSPORINE [Suspect]
     Indication: STEM CELL TRANSPLANT
     Dosage: 1.5 MG/KG/DAY
  2. METHOTREXATE [Concomitant]
     Indication: STEM CELL TRANSPLANT
  3. CYCLOPHOSPHAMIDE [Concomitant]
     Dosage: 50 MG/KG/DAY
  4. IRRADIATION [Concomitant]
     Indication: STEM CELL TRANSPLANT
     Dosage: TOTAL 12.0 GY

REACTIONS (7)
  - ACUTE GRAFT VERSUS HOST DISEASE IN SKIN [None]
  - BENIGN INTRACRANIAL HYPERTENSION [None]
  - CSF PRESSURE INCREASED [None]
  - NAUSEA [None]
  - PAPILLOEDEMA [None]
  - VITH NERVE PARALYSIS [None]
  - VOMITING [None]
